FAERS Safety Report 6530586-2 (Version None)
Quarter: 2010Q1

REPORT INFORMATION
  Report Type: 
  Country: None (occurrence: None)
  Receive Date: 20100108
  Receipt Date: 20100105
  Transmission Date: 20100710
  Serious: Yes (Other)
  Sender: FDA-Public Use
  Company Number: US-RB-000212-10

PATIENT
  Age: 68 Year
  Sex: Male

DRUGS (2)
  1. MUCINEX DM [Suspect]
     Dosage: TOOK TWO TABLETS TWICE ON SUNDAY (03-JAN-2010)
     Route: 048
     Dates: start: 20100103
  2. MUCINEX DM [Suspect]
     Dosage: TOOK ONE TABLET EVERY 12 HOURS EVERYDAY SINCE TUESDAY (05-JAN-2010)
     Route: 048
     Dates: start: 20100105

REACTIONS (1)
  - EPISTAXIS [None]
